FAERS Safety Report 21696098 (Version 1)
Quarter: 2022Q4

REPORT INFORMATION
  Report Type: Spontaneous
  Country: US (occurrence: US)
  Receive Date: 20221207
  Receipt Date: 20221207
  Transmission Date: 20230112
  Serious: No
  Sender: FDA-Public Use
  Company Number: US-BAUSCH-BL-2022-026339

PATIENT
  Sex: Female

DRUGS (1)
  1. HYDROCORTISONE BUTYRATE [Suspect]
     Active Substance: HYDROCORTISONE BUTYRATE
     Indication: Pruritus
     Route: 061

REACTIONS (4)
  - Application site rash [Unknown]
  - Application site inflammation [Unknown]
  - Symptom recurrence [Unknown]
  - Therapeutic product effect incomplete [Unknown]
